FAERS Safety Report 7779695-0 (Version None)
Quarter: 2011Q3

REPORT INFORMATION
  Report Type: 
  Country: None (occurrence: None)
  Receive Date: 20110927
  Receipt Date: 20110920
  Transmission Date: 20111222
  Serious: Yes (Other)
  Sender: FDA-Public Use
  Company Number: JP-PFIZER INC-2011222152

PATIENT
  Sex: Male

DRUGS (1)
  1. XALATAN [Suspect]
     Dosage: UNK
     Dates: start: 20110915

REACTIONS (3)
  - INTRAOCULAR PRESSURE INCREASED [None]
  - HEADACHE [None]
  - INCORRECT PRODUCT STORAGE [None]
